FAERS Safety Report 10768172 (Version 2)
Quarter: 2015Q1

REPORT INFORMATION
  Report Type: Spontaneous
  Country: DZ (occurrence: DZ)
  Receive Date: 20150206
  Receipt Date: 20150313
  Transmission Date: 20150721
  Serious: Yes (Hospitalization, Other)
  Sender: FDA-Public Use
  Company Number: DZ-ABBVIE-15K-003-1342066-00

PATIENT
  Age: 23 Year
  Sex: Female
  Weight: 50 kg

DRUGS (3)
  1. METHOTREXATE [Concomitant]
     Active Substance: METHOTREXATE
     Indication: PSORIATIC ARTHROPATHY
     Route: 048
     Dates: start: 201403
  2. HUMIRA [Suspect]
     Active Substance: ADALIMUMAB
     Route: 058
     Dates: start: 20150204
  3. HUMIRA [Suspect]
     Active Substance: ADALIMUMAB
     Indication: PSORIATIC ARTHROPATHY
     Route: 058
     Dates: start: 20140630, end: 20150204

REACTIONS (7)
  - Biopsy lymph gland abnormal [Unknown]
  - Rhinorrhoea [Recovering/Resolving]
  - Lymphadenopathy [Recovering/Resolving]
  - White blood cell count increased [Unknown]
  - Pyrexia [Recovered/Resolved]
  - Lymph node tuberculosis [Unknown]
  - Red blood cell sedimentation rate increased [Unknown]

NARRATIVE: CASE EVENT DATE: 20150110
